FAERS Safety Report 12095389 (Version 1)
Quarter: 2016Q1

REPORT INFORMATION
  Report Type: Spontaneous
  Country: IT (occurrence: IT)
  Receive Date: 20160219
  Receipt Date: 20160219
  Transmission Date: 20160526
  Serious: Yes (Other)
  Sender: FDA-Public Use
  Company Number: PHHY2016IT020673

PATIENT
  Age: 80 Year
  Sex: Female

DRUGS (4)
  1. COAPROVEL [Suspect]
     Active Substance: HYDROCHLOROTHIAZIDE\IRBESARTAN
     Indication: PRODUCT USED FOR UNKNOWN INDICATION
     Route: 065
  2. ATENOLOL. [Suspect]
     Active Substance: ATENOLOL
     Indication: PRODUCT USED FOR UNKNOWN INDICATION
     Route: 065
  3. ZYLORIC [Suspect]
     Active Substance: ALLOPURINOL
     Indication: PRODUCT USED FOR UNKNOWN INDICATION
     Route: 065
  4. TAPAZOLE [Suspect]
     Active Substance: METHIMAZOLE
     Indication: ACUTE MYELOID LEUKAEMIA
     Route: 065
     Dates: start: 20151207, end: 20151211

REACTIONS (2)
  - Atrial fibrillation [Unknown]
  - Renal failure [Unknown]

NARRATIVE: CASE EVENT DATE: 20160101
